FAERS Safety Report 6772319-0 (Version None)
Quarter: 2010Q2

REPORT INFORMATION
  Report Type: 
  Country: None (occurrence: None)
  Receive Date: 20100616
  Receipt Date: 20090813
  Transmission Date: 20101027
  Serious: No
  Sender: FDA-Public Use
  Company Number: US-ASTRAZENECA-2009SE07994

PATIENT
  Age: 33 Year
  Sex: Male

DRUGS (2)
  1. PULMICORT FLEXHALER [Suspect]
     Indication: ASTHMA
     Dosage: 720 MCG
     Route: 055
     Dates: start: 20090701, end: 20090701
  2. PULMICORT FLEXHALER [Suspect]
     Dosage: 3-4 PUFFS IN MORNING AND 2 PUFFS HS TOTAL 1080 MCG
     Route: 055
     Dates: start: 20090701

REACTIONS (2)
  - RESPIRATORY DISORDER [None]
  - SLEEP APNOEA SYNDROME [None]
